FAERS Safety Report 17668575 (Version 1)
Quarter: 2020Q2

REPORT INFORMATION
  Report Type: Spontaneous
  Country: US (occurrence: US)
  Receive Date: 20200415
  Receipt Date: 20200415
  Transmission Date: 20200713
  Serious: No
  Sender: FDA-Public Use
  Company Number: US-AUROBINDO-AUR-APL-2020-013676

PATIENT
  Age: 50 Year
  Sex: Female
  Weight: 47.6 kg

DRUGS (3)
  1. DOXEPIN HYDROCHLORIDE CAPSULES USP 10 MG [Suspect]
     Active Substance: DOXEPIN HYDROCHLORIDE
     Indication: ANXIETY
     Dosage: 10 MILLIGRAM, ONCE A DAY (FRIDAY NIGHT)
     Route: 065
     Dates: start: 20200306
  2. DOXEPIN HYDROCHLORIDE CAPSULES USP 10 MG [Suspect]
     Active Substance: DOXEPIN HYDROCHLORIDE
     Indication: DEPRESSION
     Dosage: 10 MILLIGRAM, SATURDAY NIGHT
     Route: 065
     Dates: start: 20200307, end: 20200307
  3. DOXEPIN HYDROCHLORIDE CAPSULES USP 10 MG [Suspect]
     Active Substance: DOXEPIN HYDROCHLORIDE
     Indication: INSOMNIA

REACTIONS (1)
  - Vision blurred [Not Recovered/Not Resolved]

NARRATIVE: CASE EVENT DATE: 20200307
